FAERS Safety Report 5758787-1 (Version None)
Quarter: 2008Q2

REPORT INFORMATION
  Report Type: 
  Country: None (occurrence: None)
  Receive Date: 20080530
  Receipt Date: 20080522
  Transmission Date: 20081010
  Serious: Yes (Hospitalization)
  Sender: FDA-Public Use
  Company Number: 2008PL000059

PATIENT
  Age: 34 Year
  Sex: Male

DRUGS (9)
  1. AZATHIOPRINE [Suspect]
     Indication: IMMUNOSUPPRESSANT DRUG THERAPY
     Dosage: 50 MG; QD; PO
     Route: 048
     Dates: start: 20040801, end: 20041101
  2. SIROLIMUS (SIROLIMUS) [Suspect]
     Indication: IMMUNOSUPPRESSANT DRUG THERAPY
     Dosage: 3 MG; QD; PO; 1 MG; QD; PO
     Route: 048
     Dates: end: 20050601
  3. SIROLIMUS (SIROLIMUS) [Suspect]
     Indication: IMMUNOSUPPRESSANT DRUG THERAPY
     Dosage: 3 MG; QD; PO; 1 MG; QD; PO
     Route: 048
     Dates: start: 20040901
  4. METHYLPREDNISOLONE [Suspect]
     Indication: TRANSPLANT REJECTION
     Dosage: 500 MG; QD; 1 MG/KG; QD; 5 MG;QOD;
     Dates: start: 20040801, end: 20040801
  5. METHYLPREDNISOLONE [Suspect]
     Indication: TRANSPLANT REJECTION
     Dosage: 500 MG; QD; 1 MG/KG; QD; 5 MG;QOD;
     Dates: start: 20040801, end: 20051201
  6. METHYLPREDNISOLONE [Suspect]
     Indication: TRANSPLANT REJECTION
     Dosage: 500 MG; QD; 1 MG/KG; QD; 5 MG;QOD;
     Dates: start: 20051201, end: 20051201
  7. PREDNISOLONE [Concomitant]
  8. MYCOPHENOLATE MOFETIL [Concomitant]
  9. TACROLIMUS [Concomitant]

REACTIONS (8)
  - ARTHRITIS BACTERIAL [None]
  - ARTHRITIS INFECTIVE [None]
  - ASPERGILLOSIS [None]
  - HYPERTENSION [None]
  - NEUTROPENIA [None]
  - OSTEOMYELITIS [None]
  - POST PROCEDURAL INFECTION [None]
  - THROMBOCYTOPENIA [None]
